FAERS Safety Report 10010430 (Version 2)
Quarter: 2014Q1

REPORT INFORMATION
  Report Type: Spontaneous
  Country: US (occurrence: US)
  Receive Date: 20140314
  Receipt Date: 20140327
  Transmission Date: 20141002
  Serious: No
  Sender: FDA-Public Use
  Company Number: US-BIOGENIDEC-2014BI018536

PATIENT
  Age: 62 Year
  Sex: Female

DRUGS (1)
  1. AVONEX [Suspect]
     Indication: MULTIPLE SCLEROSIS
     Route: 030
     Dates: start: 20000707

REACTIONS (5)
  - Gait disturbance [Not Recovered/Not Resolved]
  - Drug dose omission [Recovered/Resolved]
  - Speech disorder [Not Recovered/Not Resolved]
  - Feeling hot [Unknown]
  - Feeling abnormal [Unknown]
